FAERS Safety Report 7800480-5 (Version None)
Quarter: 2011Q4

REPORT INFORMATION
  Report Type: 
  Country: None (occurrence: None)
  Receive Date: 20111006
  Receipt Date: 20111004
  Transmission Date: 20120403
  Serious: Yes (Death)
  Sender: FDA-Public Use
  Company Number: US-PFIZER INC-2011236576

PATIENT

DRUGS (3)
  1. NORVASC [Suspect]
  2. ZOLOFT [Suspect]
  3. GLUCOTROL XL [Suspect]

REACTIONS (1)
  - DEATH [None]
